FAERS Safety Report 17245592 (Version 2)
Quarter: 2020Q1

REPORT INFORMATION
  Report Type: Report from Study
  Country: None (occurrence: US)
  Receive Date: 20200108
  Receipt Date: 20200110
  Transmission Date: 20200409
  Serious: Yes (Death, Hospitalization, Other)
  Sender: FDA-Public Use
  Company Number: US-ABBVIE-20K-163-3223615-00

PATIENT
  Age: 69 Year
  Sex: Male

DRUGS (1)
  1. DUOPA [Suspect]
     Active Substance: CARBIDOPA\LEVODOPA
     Indication: PARKINSON^S DISEASE
     Route: 050
     Dates: start: 201509, end: 20191029

REACTIONS (9)
  - Gastrointestinal disorder [Fatal]
  - Dyspnoea [Fatal]
  - Abdominal distension [Not Recovered/Not Resolved]
  - Death [Fatal]
  - Oxygen saturation decreased [Fatal]
  - Volvulus [Fatal]
  - Pneumonia aspiration [Fatal]
  - Gastrointestinal toxicity [Fatal]
  - Hospice care [Fatal]

NARRATIVE: CASE EVENT DATE: 20191029
